FAERS Safety Report 18212685 (Version 2)
Quarter: 2020Q3

REPORT INFORMATION
  Report Type: Spontaneous
  Country: US (occurrence: US)
  Receive Date: 20200831
  Receipt Date: 20200921
  Transmission Date: 20201103
  Serious: Yes (Hospitalization, Other)
  Sender: FDA-Public Use
  Company Number: US-009507513-2008USA012631

PATIENT
  Age: 38 Year
  Sex: Female

DRUGS (2)
  1. ZOLOFT [Concomitant]
     Active Substance: SERTRALINE HYDROCHLORIDE
     Dosage: UNK
  2. ETONOGESTREL (+) ETHINYL ESTRADIOL [Suspect]
     Active Substance: ETHINYL ESTRADIOL\ETONOGESTREL
     Indication: CONTRACEPTION
     Dosage: 1 RING
     Route: 067
     Dates: start: 202001, end: 20200801

REACTIONS (17)
  - Vaginal odour [Unknown]
  - Fatigue [Unknown]
  - Apathy [Unknown]
  - Migraine [Unknown]
  - Libido decreased [Unknown]
  - Genital discomfort [Unknown]
  - Affective disorder [Unknown]
  - Memory impairment [Unknown]
  - Disturbance in attention [Unknown]
  - Weight increased [Recovering/Resolving]
  - Female sexual dysfunction [Unknown]
  - Malaise [Unknown]
  - Depression [Unknown]
  - Amnesia [Unknown]
  - Medical device site discomfort [Unknown]
  - Irritability [Unknown]
  - Vaginal discharge [Unknown]

NARRATIVE: CASE EVENT DATE: 2020
